FAERS Safety Report 10635234 (Version 2)
Quarter: 2014Q4

REPORT INFORMATION
  Report Type: Spontaneous
  Country: GB (occurrence: GB)
  Receive Date: 20141205
  Receipt Date: 20141205
  Transmission Date: 20150529
  Serious: Yes (Death, Other)
  Sender: FDA-Public Use
  Company Number: GB-INCYTE CORPORATION-2014IN001356

PATIENT
  Age: 69 Year

DRUGS (3)
  1. CYTARABINE. [Suspect]
     Active Substance: CYTARABINE
     Indication: MYELOFIBROSIS
     Dosage: 20 MG FOR 7 DAYS
     Route: 058
  2. INC424 [Suspect]
     Active Substance: RUXOLITINIB
     Indication: MYELOFIBROSIS
     Dosage: 15 MG, BID
     Route: 065
  3. AZACITIDINE. [Concomitant]
     Active Substance: AZACITIDINE

REACTIONS (3)
  - Drug ineffective [Unknown]
  - Bacterial sepsis [Fatal]
  - Myelofibrosis [Unknown]
